FAERS Safety Report 8620902-X (Version None)
Quarter: 2012Q3

REPORT INFORMATION
  Report Type: 
  Country: None (occurrence: None)
  Receive Date: 20120824
  Receipt Date: 20120816
  Transmission Date: 20120928
  Serious: Yes (Other)
  Sender: FDA-Public Use
  Company Number: CHPA2012US014021

PATIENT
  Sex: Female

DRUGS (1)
  1. EXCEDRIN EXTRA STRENGTH CAPLETS [Suspect]
     Indication: ANTICOAGULANT THERAPY
     Dosage: 2 DF, QD
     Route: 048

REACTIONS (12)
  - ARTERIAL OCCLUSIVE DISEASE [None]
  - DYSPNOEA [None]
  - MUSCULOSKELETAL CHEST PAIN [None]
  - PAIN IN EXTREMITY [None]
  - HEART RATE DECREASED [None]
  - PAIN IN JAW [None]
  - MUSCULOSKELETAL PAIN [None]
  - THROMBOSIS [None]
  - INCORRECT DRUG ADMINISTRATION DURATION [None]
  - GINGIVAL PAIN [None]
  - OFF LABEL USE [None]
  - RIB FRACTURE [None]
